FAERS Safety Report 26201032 (Version 1)
Quarter: 2025Q4

REPORT INFORMATION
  Report Type: Report from Study
  Country: CN (occurrence: CN)
  Receive Date: 20251226
  Receipt Date: 20251226
  Transmission Date: 20260118
  Serious: Yes (Hospitalization)
  Sender: TAKEDA
  Company Number: CN-TAKEDA-2025TUS118561

PATIENT
  Age: 50 Year
  Sex: Female

DRUGS (1)
  1. LANADELUMAB [Suspect]
     Active Substance: LANADELUMAB
     Indication: Hereditary angioedema with normal C1 esterase inhibitor
     Dosage: UNK

REACTIONS (3)
  - Fall [Unknown]
  - Tibia fracture [Unknown]
  - Ligament injury [Unknown]

NARRATIVE: CASE EVENT DATE: 20251219
